FAERS Safety Report 8172886-9 (Version None)
Quarter: 2012Q1

REPORT INFORMATION
  Report Type: 
  Country: None (occurrence: None)
  Receive Date: 20120229
  Receipt Date: 20120229
  Transmission Date: 20120608
  Serious: Yes (Other)
  Sender: FDA-Public Use
  Company Number: None

PATIENT
  Age: 86 Year
  Sex: Female
  Weight: 56.699 kg

DRUGS (2)
  1. VYTORIN [Suspect]
     Indication: BLOOD CHOLESTEROL INCREASED
     Route: 048
     Dates: start: 20070701, end: 20110501
  2. LIPITOR [Concomitant]
     Dosage: 1
     Route: 048
     Dates: start: 20111001, end: 20120201

REACTIONS (2)
  - MENTAL IMPAIRMENT [None]
  - CONFUSIONAL STATE [None]
